FAERS Safety Report 9365311 (Version 1)
Quarter: 2013Q2

REPORT INFORMATION
  Report Type: Spontaneous
  Country: FR (occurrence: FR)
  Receive Date: 20130625
  Receipt Date: 20130625
  Transmission Date: 20140414
  Serious: Yes (Other)
  Sender: FDA-Public Use
  Company Number: FR-ROCHE-1239538

PATIENT
  Age: 41 Year
  Sex: Female

DRUGS (3)
  1. AVASTIN [Suspect]
     Indication: PRODUCT USED FOR UNKNOWN INDICATION
     Route: 042
     Dates: start: 20121113, end: 20130326
  2. AVASTIN [Suspect]
     Route: 042
     Dates: start: 20130604
  3. TAXOL [Suspect]
     Indication: PRODUCT USED FOR UNKNOWN INDICATION
     Route: 042
     Dates: start: 20120918

REACTIONS (3)
  - Hypertension [Recovered/Resolved]
  - Brain oedema [Recovered/Resolved]
  - Headache [Recovered/Resolved]
